FAERS Safety Report 4620725-2 (Version None)
Quarter: 2005Q1

REPORT INFORMATION
  Report Type: 
  Country: None (occurrence: None)
  Receive Date: 20050325
  Receipt Date: 20050315
  Transmission Date: 20050727
  Serious: Yes (Other)
  Sender: FDA-Public Use
  Company Number: 2005046320

PATIENT
  Age: 87 Year
  Sex: Female

DRUGS (1)
  1. LATANOPROST [Suspect]
     Indication: OPEN ANGLE GLAUCOMA
     Dosage: 2 DROP (1 DROP, 1 IN 1 D), OPTHALMIC
     Route: 047
     Dates: start: 19970701

REACTIONS (1)
  - HALLUCINATION [None]
